FAERS Safety Report 4515304-1 (Version None)
Quarter: 2004Q4

REPORT INFORMATION
  Report Type: 
  Country: None (occurrence: None)
  Receive Date: 20041201
  Receipt Date: 20040907
  Transmission Date: 20050328
  Serious: Yes (Hospitalization)
  Sender: FDA-Public Use
  Company Number: CA-BRISTOL-MYERS SQUIBB COMPANY-12697751

PATIENT

DRUGS (1)
  1. AVAPRO [Suspect]
     Indication: HYPERTENSION
     Route: 048
     Dates: start: 20020101

REACTIONS (3)
  - ARTERITIS [None]
  - CEREBRAL ARTERY STENOSIS [None]
  - HEADACHE [None]
